FAERS Safety Report 17804163 (Version 1)
Quarter: 2020Q2

REPORT INFORMATION
  Report Type: Spontaneous
  Country: DE (occurrence: DE)
  Receive Date: 20200519
  Receipt Date: 20200519
  Transmission Date: 20200714
  Serious: Yes (Other)
  Sender: FDA-Public Use
  Company Number: DE-GLAXOSMITHKLINE-D0077472D

PATIENT
  Sex: Female
  Weight: 4.3 kg

DRUGS (3)
  1. ATMADISC [Suspect]
     Active Substance: FLUTICASONE PROPIONATE\SALMETEROL XINAFOATE
     Indication: ASTHMA
     Route: 064
     Dates: start: 20090623, end: 201209
  2. SINGULAIR [Concomitant]
     Active Substance: MONTELUKAST SODIUM
     Indication: ASTHMA
     Route: 064
     Dates: start: 20090623, end: 201209
  3. EUTHYROX [Concomitant]
     Active Substance: LEVOTHYROXINE SODIUM
     Indication: HYPOTHYROIDISM
     Route: 064
     Dates: start: 2005, end: 201209

REACTIONS (2)
  - Foetal exposure during pregnancy [Recovered/Resolved]
  - Foetal malpresentation [Recovered/Resolved]

NARRATIVE: CASE EVENT DATE: 201209
